FAERS Safety Report 5302175-9 (Version None)
Quarter: 2007Q2

REPORT INFORMATION
  Report Type: 
  Country: None (occurrence: None)
  Receive Date: 20070419
  Receipt Date: 20070413
  Transmission Date: 20071010
  Serious: Yes (Hospitalization)
  Sender: FDA-Public Use
  Company Number: IT-GLAXOSMITHKLINE-B0466738A

PATIENT
  Sex: Female

DRUGS (1)
  1. PANADOL [Suspect]
     Route: 065

REACTIONS (1)
  - HEPATITIS TOXIC [None]
